FAERS Safety Report 11660053 (Version 1)
Quarter: 2015Q4

REPORT INFORMATION
  Report Type: Spontaneous
  Country: US (occurrence: None)
  Receive Date: 20151023
  Receipt Date: 20151023
  Transmission Date: 20160304
  Serious: No
  Sender: FDA-Public Use
  Company Number: None

PATIENT
  Age: 32 Year
  Sex: Female
  Weight: 69.85 kg

DRUGS (1)
  1. SKINMEDICA PURIFYING TONER [Suspect]
     Active Substance: SALICYLIC ACID
     Indication: ACNE
     Dates: start: 20150301, end: 20151001

REACTIONS (1)
  - Product container issue [None]

NARRATIVE: CASE EVENT DATE: 20150901
